FAERS Safety Report 12152765 (Version 1)
Quarter: 2016Q1

REPORT INFORMATION
  Report Type: Spontaneous
  Country: ES (occurrence: ES)
  Receive Date: 20160304
  Receipt Date: 20160304
  Transmission Date: 20160526
  Serious: Yes (Other)
  Sender: FDA-Public Use
  Company Number: ES-KOWA-16EU000134

PATIENT
  Age: 71 Year
  Sex: Male

DRUGS (5)
  1. NEBIVOLOL. [Concomitant]
     Active Substance: NEBIVOLOL
     Dosage: 5 MG, UNK
  2. ADIRO [Concomitant]
     Active Substance: ASPIRIN
     Dosage: UNK
     Dates: start: 2006
  3. ALIPZA [Suspect]
     Active Substance: PITAVASTATIN
     Indication: PRODUCT USED FOR UNKNOWN INDICATION
     Dosage: 4 MG, QD
     Route: 048
     Dates: start: 20151228, end: 20160114
  4. PANTOPRAZOL [Concomitant]
     Active Substance: PANTOPRAZOLE SODIUM
  5. CICLOSPORIN [Interacting]
     Active Substance: CYCLOSPORINE
     Indication: DRY EYE
     Dosage: UNK UNK, BID
     Route: 061

REACTIONS (9)
  - Blood cholesterol decreased [Unknown]
  - Eye pain [Not Recovered/Not Resolved]
  - Blood test abnormal [Unknown]
  - Hemiparesis [Recovering/Resolving]
  - Keratitis [Not Recovered/Not Resolved]
  - Dry eye [Not Recovered/Not Resolved]
  - Myalgia [Recovering/Resolving]
  - Pruritus [Recovering/Resolving]
  - Labelled drug-drug interaction medication error [Unknown]
